FAERS Safety Report 6083238-X (Version None)
Quarter: 2009Q1

REPORT INFORMATION
  Report Type: 
  Country: None (occurrence: None)
  Receive Date: 20090213
  Receipt Date: 20090213
  Transmission Date: 20090719
  Serious: Yes (Other)
  Sender: FDA-Public Use
  Company Number: None

PATIENT
  Sex: Female
  Weight: 79.3795 kg

DRUGS (2)
  1. EFFEXOR XR [Suspect]
     Indication: HOT FLUSH
     Dosage: 75 MG DAILY FOR 1 MONTH ORAL
     Route: 048
     Dates: start: 20081024, end: 20081121
  2. EFFEXOR XR [Suspect]
     Indication: HOT FLUSH
     Dosage: 150 MG DAILY FOR 38 DAYS ORAL
     Route: 048
     Dates: start: 20081122, end: 20081229

REACTIONS (6)
  - BLISTER [None]
  - HOT FLUSH [None]
  - MUSCLE SPASMS [None]
  - MUSCULOSKELETAL PAIN [None]
  - MYALGIA [None]
  - RASH [None]
